FAERS Safety Report 13451722 (Version 1)
Quarter: 2017Q2

REPORT INFORMATION
  Report Type: Spontaneous
  Country: US (occurrence: US)
  Receive Date: 20170418
  Receipt Date: 20170418
  Transmission Date: 20170830
  Serious: No
  Sender: FDA-Public Use
  Company Number: US-PFIZER INC-2017162084

PATIENT
  Sex: Female

DRUGS (1)
  1. XELJANZ XR [Suspect]
     Active Substance: TOFACITINIB CITRATE
     Dosage: 11 MG, DAILY

REACTIONS (13)
  - Anxiety [Unknown]
  - Depressed mood [Unknown]
  - Pain [Unknown]
  - Decreased appetite [Unknown]
  - Contusion [Unknown]
  - Asthenia [Unknown]
  - Fatigue [Unknown]
  - Arthralgia [Unknown]
  - Gait disturbance [Unknown]
  - Stress [Unknown]
  - Middle insomnia [Unknown]
  - Initial insomnia [Unknown]
  - Swelling [Unknown]

NARRATIVE: CASE EVENT DATE: 201703
